FAERS Safety Report 9188099 (Version 2)
Quarter: 2013Q3

REPORT INFORMATION
  Report Type: Spontaneous
  Country: NO (occurrence: NO)
  Receive Date: 20130325
  Receipt Date: 20130905
  Transmission Date: 20140515
  Serious: Yes (Hospitalization, Other)
  Sender: FDA-Public Use
  Company Number: NO-GLAXOSMITHKLINE-B0877313A

PATIENT
  Age: 45 Year
  Sex: Female

DRUGS (4)
  1. IMIGRAN [Suspect]
     Indication: MIGRAINE
     Dosage: 100MG AS REQUIRED
     Route: 048
     Dates: end: 20110524
  2. METFORMIN [Suspect]
     Indication: TYPE 2 DIABETES MELLITUS
     Dosage: 500MG PER DAY
     Route: 048
     Dates: start: 201103, end: 20110606
  3. INSULATARD [Suspect]
     Indication: TYPE 2 DIABETES MELLITUS
     Route: 065
     Dates: start: 2011
  4. RAMIPRIL [Suspect]
     Indication: HYPERTENSION
     Dosage: 5MG PER DAY
     Route: 048
     Dates: start: 2011

REACTIONS (2)
  - Abortion spontaneous [Unknown]
  - Exposure during pregnancy [Unknown]
